FAERS Safety Report 13125293 (Version 1)
Quarter: 2017Q1

REPORT INFORMATION
  Report Type: Spontaneous
  Country: US (occurrence: US)
  Receive Date: 20170117
  Receipt Date: 20170117
  Transmission Date: 20170428
  Serious: Yes (Other)
  Sender: FDA-Public Use
  Company Number: None

PATIENT
  Age: 11 Year
  Sex: Female
  Weight: 68.95 kg

DRUGS (4)
  1. GUAFACINE ER 3MG UNKNOWN [Suspect]
     Active Substance: GUANFACINE
     Indication: ATTENTION DEFICIT/HYPERACTIVITY DISORDER
  2. GUAFACINE ER 3MG UNKNOWN [Suspect]
     Active Substance: GUANFACINE
     Indication: OBSESSIVE-COMPULSIVE DISORDER
  3. CONCERTA [Concomitant]
     Active Substance: METHYLPHENIDATE HYDROCHLORIDE
  4. INTUNIV [Concomitant]
     Active Substance: GUANFACINE HYDROCHLORIDE

REACTIONS (4)
  - Irritability [None]
  - Product substitution issue [None]
  - Abnormal behaviour [None]
  - Aggression [None]

NARRATIVE: CASE EVENT DATE: 20150816
